FAERS Safety Report 4302147-7 (Version None)
Quarter: 2004Q1

REPORT INFORMATION
  Report Type: 
  Country: None (occurrence: None)
  Receive Date: 20040220
  Receipt Date: 20040209
  Transmission Date: 20041129
  Serious: Yes (Other)
  Sender: FDA-Public Use
  Company Number: K200400112

PATIENT
  Sex: 0

DRUGS (1)
  1. ALTACE [Suspect]
     Dosage: 10 MG, QD, ORAL; 2.5 MG, QD, ORAL
     Route: 048

REACTIONS (1)
  - INAPPROPRIATE ANTIDIURETIC HORMONE SECRETION [None]
